FAERS Safety Report 18131445 (Version 1)
Quarter: 2020Q3

REPORT INFORMATION
  Report Type: Spontaneous
  Country: CN (occurrence: CN)
  Receive Date: 20200810
  Receipt Date: 20200810
  Transmission Date: 20201103
  Serious: Yes (Hospitalization, Other)
  Sender: FDA-Public Use
  Company Number: CN-CASPER PHARMA LLC-2020CAS000397

PATIENT
  Age: 12 Year
  Sex: Male

DRUGS (2)
  1. PENICILLIN G BENZATHINE [Suspect]
     Active Substance: PENICILLIN G BENZATHINE
     Indication: CARDIOVASCULAR EVENT PROPHYLAXIS
  2. PENICILLIN G BENZATHINE [Suspect]
     Active Substance: PENICILLIN G BENZATHINE
     Indication: UPPER RESPIRATORY TRACT INFECTION
     Dosage: 1,200,000 UI
     Route: 030

REACTIONS (2)
  - Embolia cutis medicamentosa [Recovering/Resolving]
  - Rhabdomyolysis [Recovering/Resolving]
